FAERS Safety Report 21005351 (Version 5)
Quarter: 2022Q4

REPORT INFORMATION
  Report Type: Spontaneous
  Country: ES (occurrence: ES)
  Receive Date: 20220624
  Receipt Date: 20221212
  Transmission Date: 20230113
  Serious: Yes (Hospitalization, Other)
  Sender: FDA-Public Use
  Company Number: ES-Accord-267167

PATIENT
  Age: 67 Year
  Sex: Male
  Weight: 70 kg

DRUGS (18)
  1. FLUOROURACIL [Suspect]
     Active Substance: FLUOROURACIL
     Indication: Squamous cell carcinoma of head and neck
     Dosage: QD
     Route: 042
     Dates: start: 20220124, end: 20220127
  2. CARBOPLATIN [Suspect]
     Active Substance: CARBOPLATIN
     Indication: Squamous cell carcinoma of head and neck
     Dosage: 5 AUC, 1Q3W
     Route: 042
     Dates: start: 20220124, end: 20220214
  3. PEMBROLIZUMAB [Suspect]
     Active Substance: PEMBROLIZUMAB
     Indication: Squamous cell carcinoma of head and neck
     Dosage: 1Q3W
     Route: 042
     Dates: start: 20220124, end: 20220502
  4. EFFERALGAN [Concomitant]
     Active Substance: ACETAMINOPHEN
     Dates: start: 202110
  5. IBUPROFEN [Concomitant]
     Active Substance: IBUPROFEN
     Dates: start: 202110
  6. OMEPRAZOLE [Concomitant]
     Active Substance: OMEPRAZOLE
     Dates: start: 202110
  7. FENTANYL [Concomitant]
     Active Substance: FENTANYL
     Dates: start: 20220103
  8. MORPHINE SULFATE [Concomitant]
     Active Substance: MORPHINE SULFATE
     Dates: start: 20220103
  9. ONDANSETRON [Concomitant]
     Active Substance: ONDANSETRON
     Dates: start: 20220124
  10. DEXAMETHASONE [Concomitant]
     Active Substance: DEXAMETHASONE
     Dates: start: 20220124
  11. METOCLOPRAMIDE HYDROCHLORIDE [Concomitant]
     Active Substance: METOCLOPRAMIDE HYDROCHLORIDE
     Dates: start: 20220124
  12. ENOXAPARIN [Concomitant]
     Active Substance: ENOXAPARIN
     Dates: start: 20220608, end: 20220611
  13. FLUOROURACIL [Suspect]
     Active Substance: FLUOROURACIL
     Indication: Squamous cell carcinoma of head and neck
     Dosage: QD
     Route: 042
     Dates: start: 20220502, end: 20220506
  14. CARBOPLATIN [Suspect]
     Active Substance: CARBOPLATIN
     Indication: Squamous cell carcinoma of head and neck
     Dosage: 4 AUC, 1Q3W
     Route: 042
     Dates: start: 20220502, end: 20220502
  15. FLUOROURACIL [Suspect]
     Active Substance: FLUOROURACIL
     Indication: Squamous cell carcinoma of head and neck
     Dosage: QD
     Route: 042
     Dates: start: 20220214, end: 20220218
  16. FLUOROURACIL [Suspect]
     Active Substance: FLUOROURACIL
     Indication: Squamous cell carcinoma of head and neck
     Dosage: QD
     Route: 042
     Dates: start: 20220314, end: 20220318
  17. FLUOROURACIL [Suspect]
     Active Substance: FLUOROURACIL
     Indication: Squamous cell carcinoma of head and neck
     Dosage: QD
     Route: 042
     Dates: start: 20220404, end: 20220408
  18. CARBOPLATIN [Suspect]
     Active Substance: CARBOPLATIN
     Indication: Squamous cell carcinoma of head and neck
     Dosage: 4 AUC, 1Q3W
     Route: 042
     Dates: start: 20220314, end: 20220404

REACTIONS (2)
  - Haemophagocytic lymphohistiocytosis [Not Recovered/Not Resolved]
  - Febrile neutropenia [Not Recovered/Not Resolved]

NARRATIVE: CASE EVENT DATE: 20220606
